FAERS Safety Report 9649828 (Version 2)
Quarter: 2013Q4

REPORT INFORMATION
  Report Type: Report from Study
  Country: GB (occurrence: GB)
  Receive Date: 20131028
  Receipt Date: 20131028
  Transmission Date: 20140711
  Serious: Yes (Hospitalization, Other)
  Sender: FDA-Public Use
  Company Number: GB-ABBVIE-12P-167-1000821-00

PATIENT
  Age: 49 Year
  Sex: Male
  Weight: 85 kg

DRUGS (4)
  1. HUMIRA [Suspect]
     Indication: PSORIASIS
     Dosage: UNKNOWN
     Route: 058
     Dates: start: 20100125
  2. BALNEUM BATH OIL [Concomitant]
     Indication: PRODUCT USED FOR UNKNOWN INDICATION
     Dosage: REPORTED AS ^0^
     Route: 065
     Dates: start: 20090610
  3. CLOBETASOL PROPRIONATE [Concomitant]
     Indication: PRODUCT USED FOR UNKNOWN INDICATION
     Dosage: REPORTED AS ^0^
     Route: 065
     Dates: start: 20090511
  4. BETNOVATE [Concomitant]
     Indication: PRODUCT USED FOR UNKNOWN INDICATION
     Dosage: REPORTED AS ^0^
     Route: 065
     Dates: start: 20091216

REACTIONS (6)
  - Stab wound [Unknown]
  - Cellulitis [Unknown]
  - Staphylococcal infection [Unknown]
  - Wound infection [Unknown]
  - Surgery [Unknown]
  - Abscess [Unknown]
